FAERS Safety Report 5308230-1 (Version None)
Quarter: 2007Q2

REPORT INFORMATION
  Report Type: 
  Country: None (occurrence: None)
  Receive Date: 20070426
  Receipt Date: 20070416
  Transmission Date: 20071010
  Serious: Yes (Hospitalization, Other)
  Sender: FDA-Public Use
  Company Number: JP-NOVOPROD-262777

PATIENT
  Age: 56 Year
  Sex: Female
  Weight: 52 kg

DRUGS (3)
  1. NOVOLIN R [Suspect]
     Indication: DIABETES MELLITUS
     Dosage: 12-28 IU, QD
     Route: 058
     Dates: start: 20060515, end: 20060612
  2. NOVOLIN N [Suspect]
     Indication: DIABETES MELLITUS
     Dosage: 4-14 IU, QD
     Route: 058
     Dates: start: 20060515, end: 20060611
  3. NOVOLIN R [Concomitant]
     Indication: DIABETES MELLITUS
     Dosage: 12-34 IU, QD
     Route: 058
     Dates: start: 20060612

REACTIONS (2)
  - ALANINE AMINOTRANSFERASE INCREASED [None]
  - ASPARTATE AMINOTRANSFERASE INCREASED [None]
